FAERS Safety Report 6322859-3 (Version None)
Quarter: 2009Q3

REPORT INFORMATION
  Report Type: 
  Country: None (occurrence: None)
  Receive Date: 20090824
  Receipt Date: 20090303
  Transmission Date: 20100115
  Serious: No
  Sender: FDA-Public Use
  Company Number: US-ABBOTT-09P-163-0560930-00

PATIENT
  Sex: Male
  Weight: 88.53 kg

DRUGS (5)
  1. NIASPAN [Suspect]
     Indication: BLOOD CHOLESTEROL INCREASED
     Route: 048
     Dates: start: 20090217, end: 20090228
  2. TENORMIN [Concomitant]
     Indication: HYPERTENSION
     Dosage: 1 IN 24 HRS DAILY
     Route: 048
  3. LIPITOR [Concomitant]
     Indication: BLOOD CHOLESTEROL INCREASED
     Dosage: 1 IN 24 HRS DAILY
     Route: 048
  4. VITAMIN D [Concomitant]
     Indication: DRUG USE FOR UNKNOWN INDICATION
     Dosage: 1 IN 24 HRS DAILY
     Route: 048
     Dates: start: 20090217
  5. ASPIRIN [Concomitant]
     Indication: DRUG USE FOR UNKNOWN INDICATION
     Dosage: 1 IN 24 HRS DAILY
     Route: 048

REACTIONS (4)
  - ABDOMINAL PAIN UPPER [None]
  - ABNORMAL FAECES [None]
  - DIARRHOEA [None]
  - IRRITABLE BOWEL SYNDROME [None]
